FAERS Safety Report 25577037 (Version 1)
Quarter: 2025Q3

REPORT INFORMATION
  Report Type: Other
  Country: IN (occurrence: IN)
  Receive Date: 20250718
  Receipt Date: 20250718
  Transmission Date: 20251020
  Serious: Yes (Life-Threatening)
  Sender: ALVOGEN
  Company Number: IN-ALVOGEN-2025098327

PATIENT
  Age: 22 Year
  Sex: Male

DRUGS (3)
  1. DAPSONE [Suspect]
     Active Substance: DAPSONE
     Indication: Borderline leprosy
  2. RIFAMPIN [Concomitant]
     Active Substance: RIFAMPIN
     Indication: Borderline leprosy
  3. CLOFAZIMINE [Concomitant]
     Active Substance: CLOFAZIMINE
     Indication: Borderline leprosy

REACTIONS (4)
  - Drug reaction with eosinophilia and systemic symptoms [Unknown]
  - Rash maculo-papular [Recovered/Resolved]
  - Anaemia [Recovered/Resolved]
  - Pyrexia [Unknown]
